FAERS Safety Report 25164358 (Version 2)
Quarter: 2025Q2

REPORT INFORMATION
  Report Type: Spontaneous
  Country: US (occurrence: US)
  Receive Date: 20250405
  Receipt Date: 20250510
  Transmission Date: 20250717
  Serious: No
  Sender: SANOFI AVENTIS
  Company Number: US-SA-2025SA095517

PATIENT
  Age: 32 Year
  Sex: Female

DRUGS (4)
  1. DUPIXENT [Suspect]
     Active Substance: DUPILUMAB
     Indication: Eczema
     Route: 058
     Dates: start: 20250314, end: 20250314
  2. DUPIXENT [Suspect]
     Active Substance: DUPILUMAB
     Indication: Psoriasis
     Dosage: 300 MG, QOW
     Route: 058
     Dates: start: 2025
  3. FLUTICASONE [Concomitant]
     Active Substance: FLUTICASONE
  4. ZYRTEC [Concomitant]
     Active Substance: CETIRIZINE HYDROCHLORIDE

REACTIONS (10)
  - Food allergy [Unknown]
  - Rash erythematous [Unknown]
  - Injection site urticaria [Recovered/Resolved]
  - Pruritus [Unknown]
  - Skin burning sensation [Unknown]
  - Injection site pain [Recovered/Resolved]
  - Eczema [Unknown]
  - Injection site erythema [Recovered/Resolved]
  - Dry eye [Unknown]
  - Product use in unapproved indication [Unknown]

NARRATIVE: CASE EVENT DATE: 20250101
